FAERS Safety Report 4898359-4 (Version None)
Quarter: 2006Q1

REPORT INFORMATION
  Report Type: 
  Country: None (occurrence: None)
  Receive Date: 20060131
  Receipt Date: 20060131
  Transmission Date: 20060701
  Serious: Yes (Disabling, Other)
  Sender: FDA-Public Use
  Company Number: None

PATIENT
  Sex: Female
  Weight: 40.8237 kg

DRUGS (1)
  1. ZOMETA [Suspect]
     Indication: BONE CANCER METASTATIC

REACTIONS (3)
  - BONE CANCER METASTATIC [None]
  - BREAST CANCER [None]
  - OSTEONECROSIS [None]
